FAERS Safety Report 25416807 (Version 2)
Quarter: 2025Q3

REPORT INFORMATION
  Report Type: Report from Study
  Country: EU (occurrence: EU)
  Receive Date: 20250610
  Receipt Date: 20250729
  Transmission Date: 20251021
  Serious: No
  Sender: TAKEDA
  Company Number: EU-TAKEDA-2025TUS051201

PATIENT

DRUGS (1)
  1. VEDOLIZUMAB [Suspect]
     Active Substance: VEDOLIZUMAB
     Indication: Inflammatory bowel disease

REACTIONS (1)
  - Iron deficiency anaemia [Recovered/Resolved]

NARRATIVE: CASE EVENT DATE: 20240215
